FAERS Safety Report 4537207-9 (Version None)
Quarter: 2004Q4

REPORT INFORMATION
  Report Type: 
  Country: None (occurrence: None)
  Receive Date: 20041223
  Receipt Date: 20041216
  Transmission Date: 20050328
  Serious: Yes (Other)
  Sender: FDA-Public Use
  Company Number: PHBS2004FR16926

PATIENT
  Sex: Female

DRUGS (5)
  1. PRAZOSIN HCL [Concomitant]
     Dosage: 10 MG/DAY
  2. LEVOTHYROXINE SODIUM [Concomitant]
     Dosage: 250 UG/DAY
  3. LYSINE ACETYLSALICYLATE [Concomitant]
     Dosage: 100 MG/DAY
  4. METHYLDOPA [Concomitant]
     Dosage: 750 MG/DAY
  5. VALSARTAN + HYDROCHLOROTHIAZIDE [Suspect]
     Indication: HYPERTENSION
     Dosage: VLAS 80 / HCT 12.5 MG/DAY0000000000000000000

REACTIONS (5)
  - CAESAREAN SECTION [None]
  - DRUG EXPOSURE DURING PREGNANCY [None]
  - HYPERTENSION [None]
  - OLIGOHYDRAMNIOS [None]
  - PREGNANCY [None]
